FAERS Safety Report 5959333-X (Version None)
Quarter: 2008Q4

REPORT INFORMATION
  Report Type: 
  Country: None (occurrence: None)
  Receive Date: 20081120
  Receipt Date: 20081114
  Transmission Date: 20090506
  Serious: Yes (Other)
  Sender: FDA-Public Use
  Company Number: FR-BRISTOL-MYERS SQUIBB COMPANY-14407670

PATIENT
  Age: 29 Year
  Sex: Male

DRUGS (2)
  1. ABILIFY [Suspect]
     Indication: SCHIZOPHRENIA
     Route: 048
  2. EFFEXOR [Concomitant]
     Indication: SCHIZOPHRENIA
     Route: 048

REACTIONS (1)
  - GLAUCOMA [None]
